FAERS Safety Report 10554727 (Version 1)
Quarter: 2014Q4

REPORT INFORMATION
  Report Type: Spontaneous
  Country: US (occurrence: None)
  Receive Date: 20141029
  Receipt Date: 20141029
  Transmission Date: 20150529
  Serious: No
  Sender: FDA-Public Use
  Company Number: None

PATIENT
  Age: 52 Year
  Sex: Female
  Weight: 61.24 kg

DRUGS (1)
  1. PROLIA [Suspect]
     Active Substance: DENOSUMAB
     Indication: OSTEOPOROSIS
     Dosage: 60MG, GIVEN INTO/UNDER THE SKIN
     Dates: start: 20140503, end: 20141023

REACTIONS (9)
  - Pain [None]
  - Rash [None]
  - Back pain [None]
  - Pain in extremity [None]
  - Arthralgia [None]
  - Impaired healing [None]
  - Haemorrhage [None]
  - Pruritus [None]
  - Eczema [None]

NARRATIVE: CASE EVENT DATE: 20140530
